FAERS Safety Report 9776069 (Version 3)
Quarter: 2014Q2

REPORT INFORMATION
  Report Type: Spontaneous
  Country: US (occurrence: US)
  Receive Date: 20131220
  Receipt Date: 20140423
  Transmission Date: 20141212
  Serious: No
  Sender: FDA-Public Use
  Company Number: US-009507513-99081787

PATIENT
  Sex: Male
  Weight: 78.46 kg

DRUGS (5)
  1. PROPECIA [Suspect]
     Indication: ANDROGENETIC ALOPECIA
     Dosage: 1 MG, QD
     Route: 048
     Dates: end: 20100701
  2. SULFASALAZINE [Concomitant]
     Indication: COLITIS ULCERATIVE
     Dosage: UNK
     Dates: start: 1991, end: 2011
  3. REMERON [Concomitant]
     Indication: BIPOLAR I DISORDER
  4. RISPERDAL [Concomitant]
     Indication: BIPOLAR I DISORDER
  5. ALLEGRA-D [Concomitant]
     Indication: HYPERSENSITIVITY
     Dosage: 1 DF, QD

REACTIONS (14)
  - Hair disorder [Unknown]
  - Blood urine present [Unknown]
  - Upper respiratory tract infection [Unknown]
  - Hyperlipidaemia [Unknown]
  - Fatigue [Not Recovered/Not Resolved]
  - Calculus ureteric [Unknown]
  - Hypertension [Unknown]
  - Insomnia [Unknown]
  - Upper respiratory tract infection [Unknown]
  - Anxiety disorder [Unknown]
  - Erectile dysfunction [Unknown]
  - Semen volume decreased [Unknown]
  - Testicular pain [Unknown]
  - Rash [Unknown]
